FAERS Safety Report 4676574-2 (Version None)
Quarter: 2005Q2

REPORT INFORMATION
  Report Type: 
  Country: None (occurrence: None)
  Receive Date: 20050526
  Receipt Date: 20050516
  Transmission Date: 20051028
  Serious: Yes (Death)
  Sender: FDA-Public Use
  Company Number: GXKR2005GB01089

PATIENT
  Age: 62 Year
  Sex: Male
  Weight: 90 kg

DRUGS (4)
  1. ACETYLSALICYLIC ACID SRT [Suspect]
     Dosage: ORAL
     Route: 048
  2. ATENOLOL [Suspect]
     Dosage: ORAL
     Route: 048
  3. EFFEXOR XR [Suspect]
     Indication: DEPRESSION
     Dosage: 150 MG, QD, ORAL
     Route: 048
  4. OLANZAPINE [Suspect]
     Dosage: ORAL
     Route: 048

REACTIONS (3)
  - COMPLETED SUICIDE [None]
  - INTENTIONAL MISUSE [None]
  - MULTIPLE DRUG OVERDOSE [None]
